FAERS Safety Report 25609073 (Version 1)
Quarter: 2025Q3

REPORT INFORMATION
  Report Type: Spontaneous
  Country: EU (occurrence: EU)
  Receive Date: 20250726
  Receipt Date: 20250726
  Transmission Date: 20251020
  Serious: Yes (Life-Threatening, Hospitalization, Other)
  Sender: MERCK SHARP & DOHME LLC
  Company Number: None

PATIENT
  Age: 73 Year
  Sex: Female
  Weight: 53 kg

DRUGS (9)
  1. KEYTRUDA [Suspect]
     Active Substance: PEMBROLIZUMAB
     Indication: Malignant neoplasm of renal pelvis
     Route: 042
     Dates: start: 20250619, end: 20250619
  2. CALTRATE D3 600MG/400IU [Concomitant]
     Dosage: 0-0-1
  3. LOZAP 100MG [Concomitant]
     Dosage: 1/2-0-0
  4. BETALOC ZOK 25MG [Concomitant]
     Dosage: 1-0-0
  5. PEGFILGRASTIM [Concomitant]
     Active Substance: PEGFILGRASTIM
  6. Granegis 2mg [Concomitant]
     Dosage: ONCE A DAY FOR NAUSEA
  7. Vigantol 0.5mg/ml [Concomitant]
     Dosage: 20 DROPS ONCE A WEEK
  8. Metamizol 500mg  (brand name) [Concomitant]
  9. IBANDRONATE SODIUM [Concomitant]
     Active Substance: IBANDRONATE SODIUM
     Dosage: 1 TABLET ONCE A MONTH, IN THE MORNING ON AN EMPTY STOMACH

REACTIONS (2)
  - Autoimmune hepatitis [Recovering/Resolving]
  - Graves^ disease [Recovering/Resolving]

NARRATIVE: CASE EVENT DATE: 20250709
